FAERS Safety Report 17073119 (Version 1)
Quarter: 2019Q4

REPORT INFORMATION
  Report Type: Spontaneous
  Country: US (occurrence: US)
  Receive Date: 20191125
  Receipt Date: 20191125
  Transmission Date: 20200122
  Serious: No
  Sender: FDA-Public Use
  Company Number: US-SHIONOGI, INC-2019001054

PATIENT
  Age: 43 Year
  Sex: Female

DRUGS (1)
  1. MULPLETA [Suspect]
     Active Substance: LUSUTROMBOPAG
     Indication: THROMBOCYTOPENIA
     Dosage: UNK, 1 PER 1 DAY
     Route: 048

REACTIONS (2)
  - Therapeutic response decreased [Unknown]
  - No adverse event [Unknown]

NARRATIVE: CASE EVENT DATE: 201907
